FAERS Safety Report 9973564 (Version 1)
Quarter: 2014Q1

REPORT INFORMATION
  Report Type: Spontaneous
  Country: US (occurrence: None)
  Receive Date: 20140218
  Receipt Date: 20140218
  Transmission Date: 20141002
  Serious: Yes (Other)
  Sender: FDA-Public Use
  Company Number: OMPQ-PR-1312S-1385

PATIENT
  Age: 39 Year
  Sex: Male

DRUGS (1)
  1. OMNIPAQUE [Suspect]
     Indication: CHEST PAIN

REACTIONS (3)
  - Urticaria [None]
  - Nasal congestion [None]
  - Face oedema [None]
